FAERS Safety Report 9807659 (Version 1)
Quarter: 2014Q1

REPORT INFORMATION
  Report Type: Spontaneous
  Country: US (occurrence: US)
  Receive Date: 20140110
  Receipt Date: 20140110
  Transmission Date: 20141002
  Serious: No
  Sender: FDA-Public Use
  Company Number: US-009507513-1401USA002327

PATIENT
  Age: 65 Year
  Sex: Female

DRUGS (4)
  1. JANUMET [Suspect]
     Indication: TYPE 2 DIABETES MELLITUS
     Dosage: UNK, ONCE A DAY
     Route: 048
     Dates: start: 201301
  2. METFORMIN [Suspect]
     Dosage: UNKNOWN
     Dates: start: 20131231
  3. LISINOPRIL [Concomitant]
     Dosage: UNKNOWN
     Route: 048
  4. CRESTOR [Concomitant]
     Dosage: UNKNOWN

REACTIONS (4)
  - Flatulence [Recovered/Resolved]
  - Abdominal discomfort [Recovered/Resolved]
  - Drug dose omission [Unknown]
  - Dysgeusia [Unknown]
